FAERS Safety Report 10247709 (Version 1)
Quarter: 2014Q2

REPORT INFORMATION
  Report Type: Spontaneous
  Country: HR (occurrence: HR)
  Receive Date: 20140619
  Receipt Date: 20140619
  Transmission Date: 20141212
  Serious: Yes (Hospitalization)
  Sender: FDA-Public Use
  Company Number: PHHY2014HR071328

PATIENT
  Age: 33 Year
  Sex: Male
  Weight: 90 kg

DRUGS (7)
  1. CEFTRIAXONE [Suspect]
     Indication: BRAIN ABSCESS
     Dosage: 2 G, TWICE DAILY
     Route: 042
     Dates: start: 20140331
  2. CEFTRIAXONE [Suspect]
     Dosage: 2 G, DAILY
     Route: 042
     Dates: end: 20140512
  3. METRONIDAZOLE [Suspect]
     Indication: BRAIN ABSCESS
     Dosage: 500 MG, 4 TIMES DAILY
     Route: 048
     Dates: start: 20140331
  4. METRONIDAZOLE [Suspect]
     Dosage: 500 MG, 3 TIMES DAILY
     Route: 048
     Dates: end: 20140512
  5. PHENOBARBITON [Concomitant]
     Indication: BRAIN ABSCESS
     Dosage: 100 MG, BID
     Route: 048
     Dates: start: 20140331
  6. PHENOBARBITON [Concomitant]
     Dosage: 200 MG, QD
     Route: 048
  7. PHENOBARBITON [Concomitant]
     Dosage: 100 MG, BID
     Route: 048
     Dates: start: 20140512

REACTIONS (2)
  - Ageusia [Recovering/Resolving]
  - Pseudomembranous colitis [Unknown]
